FAERS Safety Report 10073900 (Version 1)
Quarter: 2014Q2

REPORT INFORMATION
  Report Type: Report from Study
  Country: BR (occurrence: BR)
  Receive Date: 20140411
  Receipt Date: 20140411
  Transmission Date: 20141212
  Serious: Yes (Hospitalization, Other)
  Sender: FDA-Public Use
  Company Number: PHHY2014BR044619

PATIENT
  Sex: Male
  Weight: 76 kg

DRUGS (2)
  1. RITALIN LA [Suspect]
     Indication: ATTENTION DEFICIT/HYPERACTIVITY DISORDER
     Dosage: 20 MG, DAILY (ONE CAPSULE, DAILY)
     Route: 048
  2. RITALIN LA [Suspect]
     Dosage: 30 MG, DAILY (ONE CAPSULE, DAILY)
     Route: 048

REACTIONS (2)
  - Nervousness [Recovering/Resolving]
  - Agitation [Recovering/Resolving]
